FAERS Safety Report 20707109 (Version 1)
Quarter: 2022Q2

REPORT INFORMATION
  Report Type: Spontaneous
  Country: US (occurrence: US)
  Receive Date: 20220413
  Receipt Date: 20220413
  Transmission Date: 20220721
  Serious: No
  Sender: FDA-Public Use
  Company Number: US-FOUNDATIONCONSUMERHC-2022-US-004750

PATIENT
  Age: 22 Year
  Sex: Female
  Weight: 131.09 kg

DRUGS (8)
  1. PLAN B ONE-STEP [Suspect]
     Active Substance: LEVONORGESTREL
     Indication: Post coital contraception
     Dosage: 1.5 MG
     Route: 048
     Dates: start: 20220219, end: 20220219
  2. ASPIRIN [Concomitant]
     Active Substance: ASPIRIN
  3. EXCEDRIN [Concomitant]
     Active Substance: ACETAMINOPHEN\ASPIRIN\CAFFEINE
     Dosage: USED AS NEEDED
  4. TYLENOL [Concomitant]
     Active Substance: ACETAMINOPHEN
     Dosage: USED AS NEEDED
  5. Unspecified ^broncho pills^ [Concomitant]
  6. VITAMIN B12 [Concomitant]
     Active Substance: CYANOCOBALAMIN
  7. VITAMIN B6 [Concomitant]
     Active Substance: PYRIDOXINE HYDROCHLORIDE
  8. FISH OIL [Concomitant]
     Active Substance: FISH OIL

REACTIONS (4)
  - Dysmenorrhoea [Not Recovered/Not Resolved]
  - Headache [Recovered/Resolved]
  - Fatigue [Recovered/Resolved]
  - Vulvovaginal dryness [Recovered/Resolved]

NARRATIVE: CASE EVENT DATE: 20220220
